FAERS Safety Report 6686212-5 (Version None)
Quarter: 2010Q2

REPORT INFORMATION
  Report Type: 
  Country: None (occurrence: None)
  Receive Date: 20100419
  Receipt Date: 20100412
  Transmission Date: 20101027
  Serious: Yes (Death, Disabling, Other)
  Sender: FDA-Public Use
  Company Number: FR-BAYER-201014322GPV

PATIENT
  Age: 45 Year
  Sex: Female

DRUGS (1)
  1. NEXAVAR [Suspect]
     Indication: GASTROINTESTINAL STROMAL TUMOUR
     Dosage: AS USED: 200/400 MG
     Route: 048
     Dates: start: 20100112, end: 20100119

REACTIONS (2)
  - GASTROINTESTINAL STROMAL TUMOUR [None]
  - VASCULITIS [None]
